FAERS Safety Report 5643053-5 (Version None)
Quarter: 2008Q1

REPORT INFORMATION
  Report Type: 
  Country: None (occurrence: None)
  Receive Date: 20080228
  Receipt Date: 20080221
  Transmission Date: 20080703
  Serious: Yes (Other)
  Sender: FDA-Public Use
  Company Number: PHHY2008AU01623

PATIENT
  Age: 59 Year
  Sex: Male

DRUGS (1)
  1. NEORAL [Suspect]
     Indication: PEMPHIGOID
     Dosage: 300 MG/DAY
     Route: 048
     Dates: start: 20080107

REACTIONS (4)
  - BLOOD PRESSURE INCREASED [None]
  - CIRCULATORY COLLAPSE [None]
  - LABYRINTHITIS [None]
  - VERTIGO [None]
